FAERS Safety Report 5841684-0 (Version None)
Quarter: 2008Q3

REPORT INFORMATION
  Report Type: 
  Country: None (occurrence: None)
  Receive Date: 20080811
  Receipt Date: 20080811
  Transmission Date: 20090109
  Serious: No
  Sender: FDA-Public Use
  Company Number: None

PATIENT
  Age: 53 Year
  Sex: Female
  Weight: 81.6475 kg

DRUGS (1)
  1. TOPAMAX [Suspect]
     Indication: MIGRAINE
     Dosage: 75MG DAILY PO
     Route: 048
     Dates: start: 20061010, end: 20070518

REACTIONS (3)
  - ANOSMIA [None]
  - DYSGEUSIA [None]
  - IMPAIRED WORK ABILITY [None]
